FAERS Safety Report 20561784 (Version 1)
Quarter: 2022Q1

REPORT INFORMATION
  Report Type: Spontaneous
  Country: US (occurrence: None)
  Receive Date: 20220306
  Receipt Date: 20220306
  Transmission Date: 20220423
  Serious: Yes (Life-Threatening, Hospitalization)
  Sender: FDA-Public Use
  Company Number: None

PATIENT
  Age: 32 Year
  Sex: Female
  Weight: 45 kg

DRUGS (3)
  1. NADOLOL [Suspect]
     Active Substance: NADOLOL
     Indication: Heart rate increased
     Route: 048
     Dates: start: 20220301, end: 20220302
  2. LEVOTHYROXINE [Concomitant]
     Active Substance: LEVOTHYROXINE
  3. CANNABIS SATIVA SUBSP. INDICA TOP [Concomitant]
     Active Substance: CANNABIS SATIVA SUBSP. INDICA TOP

REACTIONS (8)
  - Dizziness [None]
  - Gait disturbance [None]
  - Coordination abnormal [None]
  - Vision blurred [None]
  - Heart rate decreased [None]
  - Hypotension [None]
  - Product prescribing issue [None]
  - Discontinued product administered [None]

NARRATIVE: CASE EVENT DATE: 20220301
